FAERS Safety Report 4461973-4 (Version None)
Quarter: 2004Q3

REPORT INFORMATION
  Report Type: 
  Country: None (occurrence: None)
  Receive Date: 20040927
  Receipt Date: 20040927
  Transmission Date: 20050211
  Serious: Yes (Other)
  Sender: FDA-Public Use
  Company Number: None

PATIENT
  Sex: Female

DRUGS (1)
  1. ULTRAVIST 300 [Suspect]
     Indication: BRAIN SCAN ABNORMAL
     Dosage: 100 ML ONE TIME IV
     Route: 042
     Dates: start: 20040901, end: 20040901

REACTIONS (2)
  - CONTRAST MEDIA REACTION [None]
  - URTICARIA [None]
